FAERS Safety Report 5377288-6 (Version None)
Quarter: 2007Q2

REPORT INFORMATION
  Report Type: 
  Country: None (occurrence: None)
  Receive Date: 20070530
  Receipt Date: 20070228
  Transmission Date: 20071010
  Serious: No
  Sender: FDA-Public Use
  Company Number: 2007PV030854

PATIENT
  Age: 71 Year
  Sex: Female
  Weight: 99.7913 kg

DRUGS (6)
  1. BYETTA [Suspect]
     Indication: DIABETES MELLITUS NON-INSULIN-DEPENDENT
     Dosage: 10 MCG;BID;SC   5 MCG;BID;SC   10 MCG;BID;SC   5 MCG;BID;SC
     Route: 058
     Dates: start: 20061201, end: 20070101
  2. BYETTA [Suspect]
     Indication: DIABETES MELLITUS NON-INSULIN-DEPENDENT
     Dosage: 10 MCG;BID;SC   5 MCG;BID;SC   10 MCG;BID;SC   5 MCG;BID;SC
     Route: 058
     Dates: start: 20070101, end: 20070221
  3. BYETTA [Suspect]
     Indication: DIABETES MELLITUS NON-INSULIN-DEPENDENT
     Dosage: 10 MCG;BID;SC   5 MCG;BID;SC   10 MCG;BID;SC   5 MCG;BID;SC
     Route: 058
     Dates: start: 20060901
  4. BYETTA [Suspect]
     Indication: DIABETES MELLITUS NON-INSULIN-DEPENDENT
     Dosage: 10 MCG;BID;SC   5 MCG;BID;SC   10 MCG;BID;SC   5 MCG;BID;SC
     Route: 058
     Dates: start: 20070222
  5. GLUCOPHAGE [Concomitant]
  6. GLUCOTROL [Concomitant]

REACTIONS (3)
  - DIARRHOEA [None]
  - VOMITING [None]
  - WEIGHT DECREASED [None]
